FAERS Safety Report 10041560 (Version 2)
Quarter: 2014Q2

REPORT INFORMATION
  Report Type: Report from Study
  Country: US (occurrence: US)
  Receive Date: 20140327
  Receipt Date: 20140418
  Transmission Date: 20141212
  Serious: Yes (Hospitalization)
  Sender: FDA-Public Use
  Company Number: US-ACTELION-A-NJ2014-96336

PATIENT
  Age: 67 Year
  Sex: Female

DRUGS (8)
  1. MACITENTAN [Suspect]
     Indication: PULMONARY ARTERIAL HYPERTENSION
     Dosage: 10 MG, QD
     Route: 048
     Dates: start: 20140118
  2. VALACYCLOVIR [Concomitant]
  3. CITALOPRAM [Concomitant]
  4. COMBIVENT [Concomitant]
  5. CARTIA XT [Concomitant]
  6. ALTACE [Concomitant]
  7. TOPROL [Concomitant]
  8. NORVASC [Concomitant]

REACTIONS (9)
  - Pulmonary oedema [Recovered/Resolved]
  - Pulmonary arterial hypertension [Recovered/Resolved]
  - Condition aggravated [Recovered/Resolved]
  - Cardiac failure congestive [Recovered/Resolved]
  - Dyspnoea [Recovered/Resolved]
  - Dizziness [Unknown]
  - Swelling [Unknown]
  - Oedema peripheral [Unknown]
  - Pollakiuria [Unknown]
